FAERS Safety Report 17593428 (Version 1)
Quarter: 2020Q1

REPORT INFORMATION
  Report Type: Spontaneous
  Country: US (occurrence: US)
  Receive Date: 20200327
  Receipt Date: 20200327
  Transmission Date: 20200409
  Serious: No
  Sender: FDA-Public Use
  Company Number: US-TOPROL ACQUISITION LLC-2019-TOP-001425

PATIENT
  Sex: Female
  Weight: 43.08 kg

DRUGS (8)
  1. TAGRISSO [Concomitant]
     Active Substance: OSIMERTINIB
     Dosage: 80 MG, QD
     Route: 048
     Dates: end: 20191012
  2. WARFARIN [Concomitant]
     Active Substance: WARFARIN
     Indication: ATRIAL FIBRILLATION
     Dosage: UNK
     Route: 048
  3. TAGRISSO [Concomitant]
     Active Substance: OSIMERTINIB
     Dosage: 40 MG, QD
     Route: 048
  4. TAGRISSO [Concomitant]
     Active Substance: OSIMERTINIB
     Indication: NON-SMALL CELL LUNG CANCER
     Dosage: 80 MG, QD
     Route: 048
     Dates: start: 2018
  5. TAGRISSO [Concomitant]
     Active Substance: OSIMERTINIB
     Dosage: 40 MG, QOD
     Route: 048
     Dates: start: 20191110
  6. WARFARIN [Concomitant]
     Active Substance: WARFARIN
     Indication: ANTICOAGULANT THERAPY
  7. METOPROLOL SUCCINATE. [Suspect]
     Active Substance: METOPROLOL SUCCINATE
     Indication: HEART RATE INCREASED
     Dosage: UNK UNK, QD
     Route: 048
  8. TAGRISSO [Concomitant]
     Active Substance: OSIMERTINIB
     Dosage: 40 MG, QD
     Route: 048
     Dates: end: 20191012

REACTIONS (1)
  - Off label use [Unknown]
